FAERS Safety Report 8807168 (Version 1)
Quarter: 2012Q4

REPORT INFORMATION
  Report Type: 
  Country: CN (occurrence: CN)
  Receive Date: 20120925
  Receipt Date: 20120925
  Transmission Date: 20130627
  Serious: Yes (Hospitalization)
  Sender: FDA-Public Use
  Company Number: CN-BAYER-2012-077437

PATIENT
  Sex: Male

DRUGS (4)
  1. SORAFENIB (RAF KINASE INHIBITOR) [Suspect]
     Indication: HEPATIC NEOPLASM MALIGNANT
     Dosage: 400 mg, BID
     Dates: start: 20120618, end: 20120908
  2. SORAFENIB (RAF KINASE INHIBITOR) [Suspect]
     Indication: HEPATIC NEOPLASM MALIGNANT
     Dosage: 200 mg, BID
     Dates: start: 20120909
  3. ENTECAVIR [Concomitant]
  4. TACROLIMUS [Concomitant]

REACTIONS (6)
  - Rash [Recovered/Resolved]
  - Abdominal pain [Recovering/Resolving]
  - Abdominal distension [Recovering/Resolving]
  - Vomiting [Recovering/Resolving]
  - Headache [Not Recovered/Not Resolved]
  - Hospitalisation [None]
